FAERS Safety Report 25586150 (Version 1)
Quarter: 2025Q3

REPORT INFORMATION
  Report Type: Spontaneous
  Country: US (occurrence: None)
  Receive Date: 20250719
  Receipt Date: 20250719
  Transmission Date: 20251020
  Serious: Yes (Hospitalization, Other)
  Sender: FDA-CTU
  Company Number: None

PATIENT
  Age: 91 Year
  Sex: Male

DRUGS (4)
  1. ZOSYN [Suspect]
     Active Substance: PIPERACILLIN SODIUM\TAZOBACTAM SODIUM
  2. CEPHALEXIN [Concomitant]
     Active Substance: CEPHALEXIN
  3. VANCOMYCIN [Concomitant]
     Active Substance: VANCOMYCIN
  4. BACTRIM [Concomitant]
     Active Substance: SULFAMETHOXAZOLE\TRIMETHOPRIM

REACTIONS (5)
  - Delirium [None]
  - Confusional state [None]
  - Asthenia [None]
  - Hallucination [None]
  - Dysarthria [None]

NARRATIVE: CASE EVENT DATE: 20250703
